FAERS Safety Report 22881572 (Version 2)
Quarter: 2023Q4

REPORT INFORMATION
  Report Type: Report from Study
  Country: US (occurrence: US)
  Receive Date: 20230830
  Receipt Date: 20231221
  Transmission Date: 20240110
  Serious: Yes (Hospitalization)
  Sender: FDA-Public Use
  Company Number: US-ABBVIE-5386949

PATIENT
  Sex: Female

DRUGS (2)
  1. HUMIRA [Suspect]
     Active Substance: ADALIMUMAB
     Indication: Psoriatic arthropathy
     Dosage: FORM STRENGTH: 40 MILLIGRAM/CITRATE FREE
     Route: 058
     Dates: start: 20210719
  2. HUMIRA [Suspect]
     Active Substance: ADALIMUMAB
     Dosage: FORM STRENGTH: 40 MILLIGRAM/CITRATE FREE?LAST ADMIN DATE: 2021
     Route: 058
     Dates: start: 20210630

REACTIONS (4)
  - Heat stroke [Recovered/Resolved]
  - Heat stroke [Recovering/Resolving]
  - Attention deficit hyperactivity disorder [Unknown]
  - Pneumonia [Unknown]

NARRATIVE: CASE EVENT DATE: 20230101
